FAERS Safety Report 4852532-X (Version None)
Quarter: 2005Q4

REPORT INFORMATION
  Report Type: 
  Country: None (occurrence: None)
  Receive Date: 20051213
  Receipt Date: 20051114
  Transmission Date: 20060501
  Serious: Yes (Other)
  Sender: FDA-Public Use
  Company Number: PHBS2005JP16767

PATIENT
  Sex: Male

DRUGS (2)
  1. TEGRETOL [Suspect]
     Indication: HERPES ZOSTER
     Dosage: 200 MG, BID
     Route: 048
  2. NITROL [Concomitant]
     Indication: ANGINA PECTORIS
     Route: 048

REACTIONS (3)
  - FALL [None]
  - INJURY [None]
  - LOSS OF CONSCIOUSNESS [None]
